FAERS Safety Report 16057656 (Version 1)
Quarter: 2019Q1

REPORT INFORMATION
  Report Type: Spontaneous
  Country: US (occurrence: US)
  Receive Date: 20190311
  Receipt Date: 20190311
  Transmission Date: 20190418
  Serious: No
  Sender: FDA-Public Use
  Company Number: US-SA-2019SA066244

PATIENT
  Age: 63 Year
  Sex: Female

DRUGS (2)
  1. VARICELLA ZOSTER VACCINE [Suspect]
     Active Substance: VARICELLA-ZOSTER VIRUS STRAIN OKA/MERCK LIVE ANTIGEN
     Indication: IMMUNISATION
  2. TUBERSOL [Suspect]
     Active Substance: TUBERCULIN PURIFIED PROTEIN DERIVATIVE
     Indication: TUBERCULIN TEST
     Dosage: 1 ML
     Route: 030
     Dates: start: 20190304

REACTIONS (4)
  - Incorrect route of product administration [Unknown]
  - Wrong product administered [Unknown]
  - Overdose [Unknown]
  - Product administered at inappropriate site [Unknown]
